FAERS Safety Report 18050659 (Version 1)
Quarter: 2020Q3

REPORT INFORMATION
  Report Type: Spontaneous
  Country: US (occurrence: US)
  Receive Date: 20200721
  Receipt Date: 20200721
  Transmission Date: 20201103
  Serious: No
  Sender: FDA-Public Use
  Company Number: US-AMNEAL PHARMACEUTICALS-2019-IPXL-01347

PATIENT
  Sex: Male

DRUGS (2)
  1. ADRENACLICK [Suspect]
     Active Substance: EPINEPHRINE
     Indication: URTICARIA
  2. ADRENACLICK [Suspect]
     Active Substance: EPINEPHRINE
     Indication: RASH
     Dosage: 0.3 MILLIGRAM, SINGLE
     Route: 065
     Dates: start: 20190623, end: 20190623

REACTIONS (1)
  - Therapeutic response decreased [Unknown]

NARRATIVE: CASE EVENT DATE: 20190623
